FAERS Safety Report 6907846-6 (Version None)
Quarter: 2010Q3

REPORT INFORMATION
  Report Type: 
  Country: None (occurrence: None)
  Receive Date: 20100716
  Receipt Date: 20100413
  Transmission Date: 20110219
  Serious: Yes (Other)
  Sender: FDA-Public Use
  Company Number: 2010047285

PATIENT
  Age: 44 Year
  Sex: Female
  Weight: 79 kg

DRUGS (2)
  1. CELEBREX [Suspect]
     Indication: INFLAMMATION
     Dosage: 200 MG, 1X/DAY, ORAL
     Route: 048
     Dates: start: 20100412, end: 20100412
  2. CELEBREX [Suspect]
     Indication: SKIN IRRITATION
     Dosage: 200 MG, 1X/DAY, ORAL
     Route: 048
     Dates: start: 20100412, end: 20100412

REACTIONS (5)
  - DIZZINESS [None]
  - DYSPNOEA [None]
  - HYPOAESTHESIA FACIAL [None]
  - OROPHARYNGEAL DISCOMFORT [None]
  - PRURITUS [None]
